FAERS Safety Report 6163972-3 (Version None)
Quarter: 2009Q2

REPORT INFORMATION
  Report Type: 
  Country: None (occurrence: None)
  Receive Date: 20090422
  Receipt Date: 20090422
  Transmission Date: 20091009
  Serious: Yes (Other)
  Sender: FDA-Public Use
  Company Number: US-PFIZER INC-2009160225

PATIENT
  Sex: Female
  Weight: 66.667 kg

DRUGS (6)
  1. DETROL LA [Suspect]
     Dosage: UNK MG, UNK
     Dates: end: 20090101
  2. LESCOL [Concomitant]
     Dosage: UNK
  3. TENORMIN [Concomitant]
     Dosage: UNK
  4. PLAVIX [Concomitant]
     Dosage: UNK
  5. ACETYLSALICYLIC ACID [Concomitant]
     Dosage: UNK
  6. LEVOTHYROXINE [Suspect]
     Dosage: UNK

REACTIONS (4)
  - AMNESIA [None]
  - CONFUSIONAL STATE [None]
  - DEPRESSED LEVEL OF CONSCIOUSNESS [None]
  - DRY MOUTH [None]
